FAERS Safety Report 4739451-4 (Version None)
Quarter: 2005Q3

REPORT INFORMATION
  Report Type: 
  Country: None (occurrence: None)
  Receive Date: 20050808
  Receipt Date: 20050808
  Transmission Date: 20060218
  Serious: No
  Sender: FDA-Public Use
  Company Number: None

PATIENT
  Sex: Female
  Weight: 69.4003 kg

DRUGS (10)
  1. TARCEVA [Suspect]
     Indication: BREAST CANCER
     Dosage: 150MG DAILY ORAL
     Route: 048
     Dates: start: 20050624, end: 20050707
  2. TARCEVA [Suspect]
     Indication: METASTASES TO LUNG
     Dosage: 150MG DAILY ORAL
     Route: 048
     Dates: start: 20050624, end: 20050707
  3. LORAZEPAM [Concomitant]
  4. COQ [Concomitant]
  5. OMEGA 3 FISH [Concomitant]
  6. HERCEPTIN [Concomitant]
  7. CALCIUM GLUCONATE [Concomitant]
  8. POLY MVA [Concomitant]
  9. ZOMETA [Concomitant]
  10. EXEDRIN [Concomitant]

REACTIONS (5)
  - DIARRHOEA [None]
  - GLOSSODYNIA [None]
  - ORAL INTAKE REDUCED [None]
  - ORAL PAIN [None]
  - RASH [None]
